FAERS Safety Report 10386305 (Version 3)
Quarter: 2014Q3

REPORT INFORMATION
  Report Type: Report from Study
  Country: IT (occurrence: IT)
  Receive Date: 20140815
  Receipt Date: 20140909
  Transmission Date: 20150326
  Serious: Yes (Other)
  Sender: FDA-Public Use
  Company Number: IT-ROCHE-671297

PATIENT

DRUGS (4)
  1. MYCOPHENOLATE MOFETIL. [Suspect]
     Active Substance: MYCOPHENOLATE MOFETIL
     Indication: PROPHYLAXIS AGAINST TRANSPLANT REJECTION
     Route: 065
  2. THYMOGLOBULINE [Suspect]
     Active Substance: LAPINE T-LYMPHOCYTE IMMUNE GLOBULIN
     Indication: PROPHYLAXIS AGAINST TRANSPLANT REJECTION
     Dosage: INDUCTION THERAPY
     Route: 065
  3. SIROLIMUS. [Suspect]
     Active Substance: SIROLIMUS
     Indication: PROPHYLAXIS AGAINST TRANSPLANT REJECTION
     Dosage: TROUGH LEVEL TARGET 10-15 NG/ML
     Route: 065
  4. EVEROLIMUS [Suspect]
     Active Substance: EVEROLIMUS
     Indication: PROPHYLAXIS AGAINST TRANSPLANT REJECTION
     Dosage: (TROUGH TARGET6-8NG/ML)
     Route: 065

REACTIONS (5)
  - Renal vein thrombosis [Unknown]
  - Graft loss [Unknown]
  - Transplant rejection [Unknown]
  - Lymphatic disorder [Unknown]
  - Wound complication [Unknown]
